FAERS Safety Report 20779263 (Version 1)
Quarter: 2022Q2

REPORT INFORMATION
  Report Type: Spontaneous
  Country: US (occurrence: None)
  Receive Date: 20220503
  Receipt Date: 20220503
  Transmission Date: 20220720
  Serious: No
  Sender: FDA-Public Use
  Company Number: None

PATIENT

DRUGS (2)
  1. LATANOPROST [Suspect]
     Active Substance: LATANOPROST
  2. LUMIGAN [Suspect]
     Active Substance: BIMATOPROST

REACTIONS (7)
  - Product dispensing error [None]
  - Intercepted product administration error [None]
  - Product name confusion [None]
  - Product label confusion [None]
  - Product packaging confusion [None]
  - Product distribution issue [None]
  - Wrong product stored [None]
